FAERS Safety Report 4558569-2 (Version None)
Quarter: 2005Q1

REPORT INFORMATION
  Report Type: 
  Country: None (occurrence: None)
  Receive Date: 20050121
  Receipt Date: 20041215
  Transmission Date: 20050727
  Serious: Yes (Other)
  Sender: FDA-Public Use
  Company Number: JP-BRISTOL-MYERS SQUIBB COMPANY-12798484

PATIENT
  Age: 38 Year
  Sex: Male

DRUGS (3)
  1. ZERIT [Suspect]
     Indication: HIV INFECTION
     Route: 048
     Dates: start: 19971008, end: 20040603
  2. EPIVIR [Suspect]
     Indication: HIV INFECTION
     Route: 048
     Dates: start: 20030324, end: 20040603
  3. KALETRA [Suspect]
     Indication: HIV INFECTION
     Route: 048
     Dates: start: 20020805, end: 20040603

REACTIONS (9)
  - AIDS RELATED COMPLEX [None]
  - ASCITES [None]
  - GENERALISED OEDEMA [None]
  - HEPATIC FUNCTION ABNORMAL [None]
  - HYPOALBUMINAEMIA [None]
  - INFLAMMATION [None]
  - LIVER DISORDER [None]
  - PYREXIA [None]
  - SYSTEMIC INFLAMMATORY RESPONSE SYNDROME [None]
